FAERS Safety Report 8018295-4 (Version None)
Quarter: 2012Q1

REPORT INFORMATION
  Report Type: 
  Country: None (occurrence: None)
  Receive Date: 20120103
  Receipt Date: 20111227
  Transmission Date: 20120608
  Serious: Yes (Hospitalization, Other)
  Sender: FDA-Public Use
  Company Number: US-ASTRAZENECA-2008UW00803

PATIENT
  Age: 18210 Day
  Sex: Female
  Weight: 54.4 kg

DRUGS (24)
  1. LITHIUM CARBONATE [Concomitant]
     Indication: MOOD SWINGS
     Dosage: 300-600 MG DAILY
     Dates: start: 20040427
  2. HYDROCODONE [Concomitant]
     Dosage: 7.5/ 30,5/500, 5-325,7.5 / 500 , 10/ 325
     Dates: start: 20041108
  3. HYDROCODONE [Concomitant]
     Dosage: 10/325
     Dates: start: 20070409
  4. GABAPENTIN [Concomitant]
     Dates: start: 20090401
  5. XANAX [Concomitant]
     Indication: ANXIETY
     Route: 048
     Dates: start: 20040401
  6. ZYPREXA [Concomitant]
     Indication: SLEEP DISORDER
  7. DIPHENHYDRAMINE HCL [Concomitant]
     Dates: start: 20051103
  8. SEROQUEL [Suspect]
     Indication: SLEEP DISORDER
     Dosage: 25 MG TID/PRN
     Route: 048
     Dates: start: 20040427
  9. PROZAC [Concomitant]
     Route: 048
     Dates: start: 20040629
  10. HYDROCHLOROTHIAZIDE [Concomitant]
     Dates: start: 20070820
  11. METHOCARBAMOL [Concomitant]
     Dates: start: 20070814
  12. SEROQUEL [Suspect]
     Dosage: 100-300 MG AT NIGHT
     Route: 048
     Dates: start: 20040629
  13. CELEXA [Concomitant]
     Indication: AFFECTIVE DISORDER
     Dates: start: 20040427
  14. TRAMADOL HCL/TRAMADOL /ALTRAM [Concomitant]
     Indication: INTERVERTEBRAL DISC PROTRUSION
     Dates: start: 20060824
  15. TRAMADOL HCL/TRAMADOL /ALTRAM [Concomitant]
     Dates: start: 20070409
  16. SEROQUEL [Suspect]
     Route: 048
     Dates: start: 20091231
  17. DIAZEPAM [Concomitant]
     Dosage: 05 MG TO 10 MG
     Route: 048
     Dates: start: 20070425
  18. AMITRIPTYLINE HCL [Concomitant]
     Dates: start: 20070814
  19. PERCOCET [Concomitant]
     Dosage: 10/325 MG QID
     Route: 048
     Dates: start: 20091231
  20. TRAMADOL HCL/TRAMADOL /ALTRAM [Concomitant]
     Dates: end: 20091231
  21. HYDROCHLOROTHIAZIDE [Concomitant]
     Dates: start: 20080828
  22. TALAMOLPIUM [Concomitant]
     Indication: SLEEP DISORDER
  23. XANAX [Concomitant]
     Route: 048
     Dates: start: 20040629
  24. ACETAMINOPHEN [Concomitant]
     Dates: start: 20060427

REACTIONS (8)
  - OFF LABEL USE [None]
  - BACK PAIN [None]
  - ROAD TRAFFIC ACCIDENT [None]
  - OPEN WOUND [None]
  - DRUG HYPERSENSITIVITY [None]
  - LOSS OF CONSCIOUSNESS [None]
  - EXCORIATION [None]
  - FOOT FRACTURE [None]
